FAERS Safety Report 8459655-7 (Version None)
Quarter: 2012Q2

REPORT INFORMATION
  Report Type: 
  Country: None (occurrence: None)
  Receive Date: 20120622
  Receipt Date: 20120613
  Transmission Date: 20120825
  Serious: Yes (Hospitalization, Other)
  Sender: FDA-Public Use
  Company Number: CA-JNJFOC-20120606893

PATIENT
  Sex: Female
  Weight: 84 kg

DRUGS (6)
  1. ZOPICLONE [Concomitant]
     Route: 065
  2. MAGNESIUM [Concomitant]
     Route: 065
  3. FOLIC ACID [Concomitant]
     Route: 065
  4. ASCORBIC ACID [Concomitant]
     Route: 065
  5. REMICADE [Suspect]
     Indication: RHEUMATOID ARTHRITIS
     Route: 042
     Dates: start: 20070601
  6. METHOTREXATE [Concomitant]
     Route: 058

REACTIONS (2)
  - AORTIC ANEURYSM [None]
  - SPINAL COLUMN STENOSIS [None]
